FAERS Safety Report 24760585 (Version 1)
Quarter: 2024Q4

REPORT INFORMATION
  Report Type: Spontaneous
  Country: US (occurrence: None)
  Receive Date: 20241220
  Receipt Date: 20241220
  Transmission Date: 20250114
  Serious: No
  Sender: Public
  Company Number: None

PATIENT
  Sex: 0

DRUGS (1)
  1. TERIFLUNOMIDE [Suspect]
     Active Substance: TERIFLUNOMIDE

REACTIONS (5)
  - Oropharyngeal pain [None]
  - Pregnancy [None]
  - Exposure during pregnancy [None]
  - Maternal drugs affecting foetus [None]
  - Anxiety [None]
